FAERS Safety Report 21452120 (Version 1)
Quarter: 2022Q4

REPORT INFORMATION
  Report Type: Spontaneous
  Country: US (occurrence: None)
  Receive Date: 20221012
  Receipt Date: 20221012
  Transmission Date: 20230112
  Serious: No
  Sender: FDA-Public Use
  Company Number: None

PATIENT
  Sex: 0

DRUGS (1)
  1. STELARA [Suspect]
     Active Substance: USTEKINUMAB

REACTIONS (7)
  - Pruritus [None]
  - Burning sensation [None]
  - Lung disorder [None]
  - Urticaria [None]
  - Erythema [None]
  - Cough [None]
  - Therapy cessation [None]
